FAERS Safety Report 19397321 (Version 4)
Quarter: 2021Q4

REPORT INFORMATION
  Report Type: Report from Study
  Country: US (occurrence: US)
  Receive Date: 20210609
  Receipt Date: 20211201
  Transmission Date: 20220303
  Serious: Yes (Life-Threatening, Hospitalization, Disabling, Other)
  Sender: FDA-Public Use
  Company Number: US-GILEAD-2021-0526503

PATIENT
  Age: 55 Year
  Sex: Male

DRUGS (29)
  1. REMDESIVIR [Suspect]
     Active Substance: REMDESIVIR
     Indication: COVID-19
     Dosage: UNK, QD
     Route: 042
     Dates: start: 20210324
  2. INFLIXIMAB [Suspect]
     Active Substance: INFLIXIMAB
     Indication: COVID-19
     Dosage: UNK, ONCE
     Route: 042
     Dates: start: 20210324
  3. PLACEBO [Suspect]
     Active Substance: UNSPECIFIED INGREDIENT
     Indication: COVID-19
     Dosage: UNK, ONCE
     Route: 042
     Dates: start: 20210324
  4. AZITHROMYCIN [Concomitant]
     Active Substance: AZITHROMYCIN
  5. CEFEPIME [Concomitant]
     Active Substance: CEFEPIME HYDROCHLORIDE
  6. DEXAMETHASONE [Concomitant]
     Active Substance: DEXAMETHASONE
  7. ENOXAPARIN [Concomitant]
     Active Substance: ENOXAPARIN
  8. FAMOTIDINE [Concomitant]
     Active Substance: FAMOTIDINE
  9. FUROSEMIDE [Concomitant]
     Active Substance: FUROSEMIDE
  10. OMEPRAZOLE [Concomitant]
     Active Substance: OMEPRAZOLE
  11. ACETAMINOPHEN [Concomitant]
     Active Substance: ACETAMINOPHEN
  12. TERBINAFINE [Concomitant]
     Active Substance: TERBINAFINE
  13. CIPROFLOXACIN [Concomitant]
     Active Substance: CIPROFLOXACIN
  14. MEROPENEM [Concomitant]
     Active Substance: MEROPENEM
  15. TOBRAMYCIN [Concomitant]
     Active Substance: TOBRAMYCIN
  16. BISACODYL [Concomitant]
     Active Substance: BISACODYL
  17. CALCIUM CHLORIDE\POTASSIUM CHLORIDE\SODIUM LACTATE [Concomitant]
     Active Substance: CALCIUM CHLORIDE\POTASSIUM CHLORIDE\SODIUM LACTATE
  18. DOCUSATE SODIUM\SENNA LEAF [Concomitant]
     Active Substance: DOCUSATE SODIUM\SENNA LEAF
  19. GLUCAGON [Concomitant]
     Active Substance: GLUCAGON
  20. DEXTROSE [Concomitant]
     Active Substance: DEXTROSE
  21. HYDRALAZINE [Concomitant]
     Active Substance: HYDRALAZINE HYDROCHLORIDE
  22. HYPROMELLOSES [Concomitant]
     Active Substance: HYPROMELLOSES
  23. INSULIN NOS [Concomitant]
     Active Substance: INSULIN NOS
  24. LORAZEPAM [Concomitant]
     Active Substance: LORAZEPAM
  25. POLYETHYLENE GLYCOL 3350 [Concomitant]
     Active Substance: POLYETHYLENE GLYCOL 3350
  26. MAGNESIUM SULFATE [Concomitant]
     Active Substance: MAGNESIUM SULFATE
  27. ONDANSETRON [Concomitant]
     Active Substance: ONDANSETRON
  28. POTASSIUM CHLORIDE [Concomitant]
     Active Substance: POTASSIUM CHLORIDE
  29. PROPOFOL [Concomitant]
     Active Substance: PROPOFOL

REACTIONS (6)
  - Pneumonia pseudomonal [Not Recovered/Not Resolved]
  - Hypoxia [Recovering/Resolving]
  - Acute kidney injury [Not Recovered/Not Resolved]
  - Cerebrovascular accident [Not Recovered/Not Resolved]
  - Pulseless electrical activity [Recovered/Resolved]
  - Supraventricular tachycardia [Recovered/Resolved]

NARRATIVE: CASE EVENT DATE: 20210325
